FAERS Safety Report 18845556 (Version 1)
Quarter: 2021Q1

REPORT INFORMATION
  Report Type: Other
  Country: PL (occurrence: PL)
  Receive Date: 20210204
  Receipt Date: 20210204
  Transmission Date: 20210419
  Serious: Yes (Hospitalization)
  Sender: FDA-Public Use
  Company Number: PL-ROCHE-2759663

PATIENT
  Age: 68 Year
  Sex: Male

DRUGS (10)
  1. FLUCONAZOLE. [Suspect]
     Active Substance: FLUCONAZOLE
     Indication: INFECTION
     Dosage: 2 X 100 MG IN COMBINATION WITH CIPROFLOXACIN 2 X 500 MG ORALLY
     Route: 065
  2. METOPROLOL. [Concomitant]
     Active Substance: METOPROLOL
     Dosage: THE PATIENT WAS TAKING 100 MG OF METOPROLOL.
     Route: 048
  3. FUROSEMIDE. [Concomitant]
     Active Substance: FUROSEMIDE
     Dosage: THE PATIENT WAS TAKING 40 MG OF FUROSEMIDE.
     Route: 048
  4. ATORVASTATIN [Suspect]
     Active Substance: ATORVASTATIN
     Indication: PRODUCT USED FOR UNKNOWN INDICATION
     Dosage: THE PATIENT WAS TAKING 40 MG OF ATORVASTATIN.
     Route: 048
  5. CETIRIZINE [Suspect]
     Active Substance: CETIRIZINE HYDROCHLORIDE
     Indication: PRURITUS GENITAL
     Dosage: 10 MG/DAY
     Route: 065
  6. RIVAROXABAN [Suspect]
     Active Substance: RIVAROXABAN
     Indication: PRODUCT USED FOR UNKNOWN INDICATION
     Dosage: THE PATIENT WAS TAKING 20 MG OF RIVAROXABAN.
     Route: 048
  7. DIAZEPAM. [Suspect]
     Active Substance: DIAZEPAM
     Indication: INSOMNIA
     Dosage: 10 MG TO BE TAKEN HALF AN HOUR BEFORE BEDTIME
     Route: 065
  8. QUETIAPINE. [Suspect]
     Active Substance: QUETIAPINE
     Indication: INSOMNIA
     Dosage: INITIALLY THE PATIENT WAS TAKING QUETIAPINE AT A DOSE OF 25 MG AT BEDTIME.
     Route: 065
  9. CIPROFLOXACIN. [Suspect]
     Active Substance: CIPROFLOXACIN
     Indication: INFECTION
     Dosage: 2 X 500 MG ORALLY IN COMBINATION WITH FLUCONAZOLE 2 X100 MG
     Route: 048
  10. QUETIAPINE. [Suspect]
     Active Substance: QUETIAPINE
     Dosage: THE DOSE OF QUETIAPINE WAS INCREASED TO 50 MG AT BEDTIME.
     Route: 065

REACTIONS (5)
  - Pruritus genital [Recovered/Resolved]
  - Somnolence [Unknown]
  - Drug interaction [Unknown]
  - Haemorrhage [Recovered/Resolved]
  - Fall [Unknown]
